FAERS Safety Report 4879449-9 (Version None)
Quarter: 2005Q4

REPORT INFORMATION
  Report Type: 
  Country: None (occurrence: None)
  Receive Date: 20051209
  Receipt Date: 20050524
  Transmission Date: 20060501
  Serious: Yes (Death)
  Sender: FDA-Public Use
  Company Number: 2013359

PATIENT
  Age: 46 Year
  Sex: Male
  Weight: 133 kg

DRUGS (16)
  1. OXYCONTIN [Suspect]
     Indication: PAIN
     Dosage: 40 MG, BID, PARENTERAL
     Route: 051
     Dates: start: 19981218
  2. OXYCONTIN [Suspect]
     Indication: PAIN
     Dosage: 20 MG
     Dates: start: 19990330
  3. OXYCONTIN [Suspect]
     Indication: PAIN
     Dates: start: 19981214
  4. HYDROCODONE BITARTRATE [Suspect]
  5. DIAZEPAM [Suspect]
  6. COCAINE (COCAINE) [Suspect]
  7. DEXTROMETHORPHAN (DEXTROMETHORPHAN) [Suspect]
  8. ALCOHOL (ETHANOL) [Suspect]
  9. VALIUM [Concomitant]
  10. TYLOX [Concomitant]
  11. LORTAB [Concomitant]
  12. PERCOCET [Concomitant]
  13. BACTRIM DS [Concomitant]
  14. PYRIDIUM [Concomitant]
  15. KEFLEX [Concomitant]
  16. SILVADENE [Concomitant]

REACTIONS (20)
  - ABDOMINAL PAIN [None]
  - ACCIDENTAL OVERDOSE [None]
  - ANXIETY [None]
  - BACK PAIN [None]
  - DRUG DEPENDENCE [None]
  - DRUG INEFFECTIVE [None]
  - DYSPNOEA [None]
  - EMOTIONAL DISTRESS [None]
  - FAECAL INCONTINENCE [None]
  - FALL [None]
  - HAEMATOCHEZIA [None]
  - HAEMATURIA [None]
  - INSOMNIA [None]
  - NAUSEA [None]
  - NOCTURIA [None]
  - PAIN [None]
  - RENAL COLIC [None]
  - THERMAL BURN [None]
  - URINARY TRACT INFECTION [None]
  - VOMITING [None]
